FAERS Safety Report 12093868 (Version 6)
Quarter: 2016Q3

REPORT INFORMATION
  Report Type: Spontaneous
  Country: US (occurrence: US)
  Receive Date: 20160219
  Receipt Date: 20160817
  Transmission Date: 20161109
  Serious: Yes (Hospitalization, Other)
  Sender: FDA-Public Use
  Company Number: US-PFIZER INC-2016095081

PATIENT
  Age: 54 Year
  Sex: Female
  Weight: 59.42 kg

DRUGS (3)
  1. LYRICA [Suspect]
     Active Substance: PREGABALIN
     Dosage: 75 MG, UNK
     Route: 048
  2. LYRICA [Suspect]
     Active Substance: PREGABALIN
     Indication: PAIN
     Dosage: 225 MG, 2X/DAY
     Route: 048
  3. LYRICA [Suspect]
     Active Substance: PREGABALIN
     Dosage: 50 UNK, UNK
     Route: 048

REACTIONS (6)
  - Dehydration [Unknown]
  - Seizure [Unknown]
  - Headache [Unknown]
  - Weight decreased [Unknown]
  - Dysstasia [Unknown]
  - Fall [Unknown]
